FAERS Safety Report 5626813-6 (Version None)
Quarter: 2008Q1

REPORT INFORMATION
  Report Type: 
  Country: None (occurrence: None)
  Receive Date: 20080212
  Receipt Date: 20080130
  Transmission Date: 20080703
  Serious: Yes (Hospitalization)
  Sender: FDA-Public Use
  Company Number: 230275J08USA

PATIENT
  Age: 63 Year
  Sex: Female
  Weight: 72.5755 kg

DRUGS (2)
  1. REBIF [Suspect]
     Indication: MULTIPLE SCLEROSIS
     Dosage: 44 MCG, 3 IN 1 WEEKS, SUBCUTANEOUS
     Route: 058
     Dates: start: 20070305, end: 20080105
  2. ANTIDEPRESSANTS (ANTIDEPRESSANTS) [Concomitant]

REACTIONS (6)
  - DEPRESSION [None]
  - ERYTHEMA [None]
  - INCORRECT DOSE ADMINISTERED [None]
  - INJURY [None]
  - SUICIDE ATTEMPT [None]
  - WOUND HAEMORRHAGE [None]
